FAERS Safety Report 6902066-3 (Version None)
Quarter: 2010Q3

REPORT INFORMATION
  Report Type: 
  Country: None (occurrence: None)
  Receive Date: 20100802
  Receipt Date: 20100802
  Transmission Date: 20110219
  Serious: Yes (Hospitalization)
  Sender: FDA-Public Use
  Company Number: None

PATIENT
  Age: 72 Year
  Sex: Male
  Weight: 83.6 kg

DRUGS (6)
  1. RISPERIDONE [Suspect]
     Indication: SCHIZOPHRENIA
     Dosage: 0.25MG PO QHS - 0.50MG PO QHS
     Route: 048
     Dates: start: 20080601, end: 20100628
  2. RISPERIDONE [Suspect]
     Indication: SCHIZOPHRENIA
     Dosage: 0.25MG PO QHS - 0.50MG PO QHS
     Route: 048
     Dates: start: 20100628
  3. GLIPIZIDE [Concomitant]
  4. LISINOPRIL [Concomitant]
  5. TRAZODONE [Concomitant]
  6. SIMVASTATIN [Concomitant]

REACTIONS (4)
  - APPENDICECTOMY [None]
  - BLOOD CREATININE INCREASED [None]
  - BLOOD UREA INCREASED [None]
  - DIZZINESS [None]
